FAERS Safety Report 10048460 (Version 1)
Quarter: 2014Q1

REPORT INFORMATION
  Report Type: Spontaneous
  Country: GB (occurrence: GB)
  Receive Date: 20140331
  Receipt Date: 20140331
  Transmission Date: 20141002
  Serious: Yes (Other)
  Sender: FDA-Public Use
  Company Number: GB-PFIZER INC-2014087211

PATIENT
  Sex: Female

DRUGS (1)
  1. TOLTERODINE TARTRATE [Suspect]
     Indication: URGE INCONTINENCE
     Dosage: 2 MG, BID
     Route: 048
     Dates: end: 20140221

REACTIONS (6)
  - Constipation [Unknown]
  - Pallor [Unknown]
  - Paraesthesia [Unknown]
  - Fall [Unknown]
  - Feeling abnormal [Unknown]
  - Muscle tightness [Unknown]
